FAERS Safety Report 5419315-3 (Version None)
Quarter: 2007Q3

REPORT INFORMATION
  Report Type: 
  Country: None (occurrence: None)
  Receive Date: 20070820
  Receipt Date: 20070809
  Transmission Date: 20080115
  Serious: Yes (Other)
  Sender: FDA-Public Use
  Company Number: US-JNJFOC-20070802893

PATIENT
  Sex: Male
  Weight: 104.33 kg

DRUGS (5)
  1. FENTANYL TRANSDERMAL SYSTEM [Suspect]
     Route: 062
  2. FENTANYL TRANSDERMAL SYSTEM [Suspect]
     Indication: BACK PAIN
     Dosage: 100 UG/HR PLUS 25 UG/HR PATCHES
     Route: 062
  3. BETHANECHOL CHLORIDE [Concomitant]
     Indication: MUSCLE SPASMS
     Route: 048
  4. AMBIEN [Concomitant]
     Dosage: AT NIGHT
     Route: 048
  5. BACLOFEN [Concomitant]
     Indication: MUSCLE RELAXANT THERAPY
     Route: 048

REACTIONS (4)
  - BLADDER DISORDER [None]
  - CONSTIPATION [None]
  - SKIN INJURY [None]
  - THERAPY CESSATION [None]
